FAERS Safety Report 9580575 (Version 1)
Quarter: 2013Q4

REPORT INFORMATION
  Report Type: Spontaneous
  Country: US (occurrence: US)
  Receive Date: 20131002
  Receipt Date: 20131002
  Transmission Date: 20140711
  Serious: No
  Sender: FDA-Public Use
  Company Number: US-009507513-1309USA014312

PATIENT
  Age: 42 Year
  Sex: Female

DRUGS (1)
  1. SYLATRON [Suspect]
     Route: 058

REACTIONS (1)
  - Hepatic enzyme increased [Unknown]
